FAERS Safety Report 9624663 (Version 1)
Quarter: 2013Q4

REPORT INFORMATION
  Report Type: Spontaneous
  Country: US (occurrence: US)
  Receive Date: 20131015
  Receipt Date: 20131015
  Transmission Date: 20140711
  Serious: Yes (Hospitalization)
  Sender: FDA-Public Use
  Company Number: PHHY2013US112679

PATIENT
  Age: 37 Year
  Sex: Male

DRUGS (4)
  1. ZOLPIDEM [Suspect]
     Indication: INSOMNIA
     Dosage: 5 MG, FOR 8 YEARS
  2. ZOLPIDEM [Suspect]
     Dosage: 10 MG, UNK
  3. BUPROPION HYDROCHLORIDE [Suspect]
     Indication: NICOTINE DEPENDENCE
  4. ALCOHOL [Concomitant]

REACTIONS (5)
  - Disorientation [Unknown]
  - Incoherent [Unknown]
  - Abnormal dreams [Unknown]
  - Intentional self-injury [Unknown]
  - Amnesia [Unknown]
